FAERS Safety Report 26130914 (Version 1)
Quarter: 2025Q4

REPORT INFORMATION
  Report Type: Spontaneous
  Country: US (occurrence: US)
  Receive Date: 20251208
  Receipt Date: 20251208
  Transmission Date: 20260118
  Serious: No
  Sender: ELI LILLY AND COMPANY
  Company Number: US-ELI_LILLY_AND_COMPANY-US202512008507

PATIENT
  Age: 60 Year
  Sex: Female
  Weight: 67.12 kg

DRUGS (2)
  1. MOUNJARO [Suspect]
     Active Substance: TIRZEPATIDE
     Indication: Product used for unknown indication
     Dosage: UNK UNK, WEEKLY (1/W)
     Route: 065
     Dates: start: 202308
  2. HYDROCODONE [Concomitant]
     Active Substance: HYDROCODONE
     Indication: Arthritis

REACTIONS (1)
  - Constipation [Unknown]
